FAERS Safety Report 23285182 (Version 1)
Quarter: 2023Q4

REPORT INFORMATION
  Report Type: Spontaneous
  Country: US (occurrence: None)
  Receive Date: 20231211
  Receipt Date: 20231211
  Transmission Date: 20240110
  Serious: No
  Sender: FDA-Public Use
  Company Number: 2023A270452

PATIENT
  Sex: Female

DRUGS (1)
  1. FARXIGA [Suspect]
     Active Substance: DAPAGLIFLOZIN PROPANEDIOL
     Route: 048
     Dates: start: 2007, end: 2001

REACTIONS (4)
  - Urine ketone body absent [Unknown]
  - Urine odour abnormal [Unknown]
  - Breath odour [Unknown]
  - Heart rate irregular [Unknown]
